FAERS Safety Report 7465236-4 (Version None)
Quarter: 2011Q1

REPORT INFORMATION
  Report Type: 
  Country: None (occurrence: None)
  Receive Date: 20110302
  Receipt Date: 20100823
  Transmission Date: 20110831
  Serious: Yes (Other)
  Sender: FDA-Public Use
  Company Number: 163-21880-10072717

PATIENT
  Age: 72 Year
  Sex: Female

DRUGS (14)
  1. HUMULIN 70/30 [Concomitant]
  2. STOOL SOFTENER (DOCUSATE SODIUM) [Concomitant]
  3. OMEPRAZOLE [Concomitant]
  4. CALCIUM 600 PLUS D (CALCIUM D3) [Concomitant]
  5. IBUPROFEN (ADVIL) [Concomitant]
  6. LEVOTHYROXINE SODIUM [Concomitant]
  7. MORPHINE SULFATE INJ [Concomitant]
  8. PLAVIX [Concomitant]
  9. REVLIMID [Suspect]
     Indication: MULTIPLE MYELOMA
     Dosage: 10 MG, 1 IN 1 D, PO, 5 MG, QD X 21 DAYS, PO
     Route: 048
     Dates: start: 20100629, end: 20100719
  10. REVLIMID [Suspect]
     Indication: MULTIPLE MYELOMA
     Dosage: 10 MG, 1 IN 1 D, PO, 5 MG, QD X 21 DAYS, PO
     Route: 048
     Dates: start: 20100803, end: 20100804
  11. ATENOLOL [Concomitant]
  12. ASPIRIN [Concomitant]
  13. FUROSEMIDE [Concomitant]
  14. LEXAPRO [Concomitant]

REACTIONS (2)
  - URTICARIA [None]
  - CLAVICLE FRACTURE [None]
